FAERS Safety Report 18076140 (Version 1)
Quarter: 2020Q3

REPORT INFORMATION
  Report Type: Spontaneous
  Country: US (occurrence: US)
  Receive Date: 20200727
  Receipt Date: 20200727
  Transmission Date: 20201103
  Serious: No
  Sender: FDA-Public Use
  Company Number: US-ABBVIE-20K-163-3426483-00

PATIENT
  Age: 80 Year
  Sex: Female

DRUGS (4)
  1. ALLERGY RELIEF [Concomitant]
     Indication: PHARYNGEAL SWELLING
  2. SYNTHROID [Suspect]
     Active Substance: LEVOTHYROXINE SODIUM
     Indication: HYPOTHYROIDISM
     Route: 048
     Dates: start: 202002
  3. SYSTANE BALANCE [Concomitant]
     Active Substance: PROPYLENE GLYCOL
     Indication: DRY EYE
  4. LATANOPROST. [Concomitant]
     Active Substance: LATANOPROST
     Indication: GLAUCOMA

REACTIONS (9)
  - Dizziness [Recovered/Resolved]
  - Lip disorder [Recovered/Resolved]
  - Alopecia [Not Recovered/Not Resolved]
  - Ear discomfort [Not Recovered/Not Resolved]
  - Tremor [Not Recovered/Not Resolved]
  - Pharyngeal swelling [Recovered/Resolved]
  - Feeling abnormal [Recovered/Resolved]
  - Tinnitus [Not Recovered/Not Resolved]
  - Abnormal behaviour [Recovered/Resolved]

NARRATIVE: CASE EVENT DATE: 2020
